FAERS Safety Report 20302168 (Version 3)
Quarter: 2022Q1

REPORT INFORMATION
  Report Type: Report from Study
  Country: US (occurrence: US)
  Receive Date: 20220106
  Receipt Date: 20220228
  Transmission Date: 20220423
  Serious: No
  Sender: FDA-Public Use
  Company Number: US-NOVARTISTESTPH-NVSC2022US001624

PATIENT
  Sex: Male

DRUGS (3)
  1. ENTRESTO [Suspect]
     Active Substance: SACUBITRIL\VALSARTAN
     Indication: Product used for unknown indication
     Dosage: 100 MG, BID
     Route: 048
     Dates: start: 202112
  2. ENTRESTO [Suspect]
     Active Substance: SACUBITRIL\VALSARTAN
     Dosage: 50 MG (HCP INCREASED DOSE FROM 24/26 MG TO 49/51 MG)
     Route: 048
  3. METOPROLOL [Suspect]
     Active Substance: METOPROLOL
     Indication: Product used for unknown indication
     Dosage: UNK (CUT IN HALF)
     Route: 065

REACTIONS (6)
  - Electric shock sensation [Unknown]
  - Fluid retention [Unknown]
  - Weight decreased [Unknown]
  - Overweight [Unknown]
  - Wrong technique in product usage process [Unknown]
  - Hypertension [Unknown]
